FAERS Safety Report 5805974-X (Version None)
Quarter: 2008Q3

REPORT INFORMATION
  Report Type: 
  Country: None (occurrence: None)
  Receive Date: 20080710
  Receipt Date: 20080703
  Transmission Date: 20090109
  Serious: Yes (Life-Threatening, Hospitalization)
  Sender: FDA-Public Use
  Company Number: A0736033A

PATIENT
  Age: 39 Year
  Sex: Male

DRUGS (6)
  1. LAMICTAL [Suspect]
     Indication: BIPOLAR DISORDER
     Dosage: 150MG PER DAY
     Route: 048
  2. AMBIEN [Suspect]
     Indication: SLEEP DISORDER
     Dosage: 10MG PER DAY
     Route: 048
     Dates: end: 20080101
  3. LEXAPRO [Concomitant]
  4. METFORMIN [Concomitant]
  5. GLYBURIDE [Concomitant]
  6. ABILIFY [Concomitant]

REACTIONS (2)
  - OVERDOSE [None]
  - SUICIDAL BEHAVIOUR [None]
